FAERS Safety Report 23903014 (Version 1)
Quarter: 2024Q2

REPORT INFORMATION
  Report Type: Spontaneous
  Country: US (occurrence: US)
  Receive Date: 20240527
  Receipt Date: 20240527
  Transmission Date: 20240716
  Serious: No
  Sender: FDA-Public Use
  Company Number: US-BAUSCHBL-2024BNL027273

PATIENT
  Age: 74 Year
  Sex: Female

DRUGS (5)
  1. LEVOBUNOLOL HYDROCHLORIDE [Suspect]
     Active Substance: LEVOBUNOLOL HYDROCHLORIDE
     Indication: Glaucoma
     Dosage: 1 GTT BID 1 DROP TWICE DAILY IN BOTH EYES
     Route: 047
     Dates: start: 20240515
  2. DORZOLAMIDE HYDROCHLORIDE [Suspect]
     Active Substance: DORZOLAMIDE HYDROCHLORIDE
     Indication: Glaucoma
     Route: 065
  3. LATANOPROST [Suspect]
     Active Substance: LATANOPROST
     Indication: Glaucoma
     Route: 065
  4. BRIMONIDINE TARTRATE [Suspect]
     Active Substance: BRIMONIDINE TARTRATE
     Indication: Glaucoma
     Route: 065
  5. BIMATOPROST [Concomitant]
     Active Substance: BIMATOPROST
     Indication: Glaucoma

REACTIONS (5)
  - Brain fog [Unknown]
  - Eyelid disorder [Unknown]
  - Vision blurred [Unknown]
  - Headache [Unknown]
  - Drug ineffective [Unknown]

NARRATIVE: CASE EVENT DATE: 20240515
